FAERS Safety Report 12282210 (Version 1)
Quarter: 2016Q2

REPORT INFORMATION
  Report Type: Spontaneous
  Country: US (occurrence: None)
  Receive Date: 20160418
  Receipt Date: 20160418
  Transmission Date: 20160815
  Serious: No
  Sender: FDA-Public Use
  Company Number: None

PATIENT
  Age: 57 Year
  Sex: Female

DRUGS (1)
  1. GLATOPA [Suspect]
     Active Substance: GLATIRAMER ACETATE
     Indication: MULTIPLE SCLEROSIS
     Route: 058
     Dates: start: 20150630, end: 20150830

REACTIONS (6)
  - Heart rate increased [None]
  - Back pain [None]
  - Flushing [None]
  - Immediate post-injection reaction [None]
  - Therapy change [None]
  - Chest pain [None]

NARRATIVE: CASE EVENT DATE: 20150630
